FAERS Safety Report 8791586 (Version 2)
Quarter: 2012Q4

REPORT INFORMATION
  Report Type: Spontaneous
  Country: US (occurrence: None)
  Receive Date: 20120913
  Receipt Date: 20121009
  Transmission Date: 20130627
  Serious: No
  Sender: FDA-Public Use
  Company Number: SP06063

PATIENT
  Age: 46 Year
  Sex: Male

DRUGS (12)
  1. RELISTOR [Suspect]
     Indication: OPIOID INDUCED CONSTIPATION
     Route: 058
     Dates: start: 20120906, end: 20120906
  2. AMITRIPTYLINE [Concomitant]
  3. ASPIRIN [Concomitant]
  4. DEXILANT [Concomitant]
  5. LYRICA [Concomitant]
  6. METFORMIN [Concomitant]
  7. METHADONE [Concomitant]
  8. PERCOCET [Concomitant]
  9. PRINIVIL [Concomitant]
  10. SIMVASTATIN [Concomitant]
  11. TRICOR [Concomitant]
  12. TIZANIDINE [Concomitant]

REACTIONS (3)
  - Diarrhoea [None]
  - Pyrexia [None]
  - Nausea [None]
